FAERS Safety Report 12849314 (Version 1)
Quarter: 2016Q4

REPORT INFORMATION
  Report Type: Spontaneous
  Country: US (occurrence: US)
  Receive Date: 20161014
  Receipt Date: 20161014
  Transmission Date: 20170207
  Serious: Yes (Hospitalization)
  Sender: FDA-Public Use
  Company Number: US-HERITAGE PHARMACEUTICALS-2016HTG00255

PATIENT
  Age: 52 Year
  Sex: Female

DRUGS (3)
  1. VENLAFAXINE HYDROCHLORIDE. [Suspect]
     Active Substance: VENLAFAXINE HYDROCHLORIDE
     Indication: MAJOR DEPRESSION
     Dosage: 75 MG, 1X/DAY
     Route: 065
  2. CELERY ROOT EXTRACT [Suspect]
     Active Substance: CELERY SEED
     Indication: MENOPAUSE
     Dosage: 1000 MG, 1X/DAY
     Route: 065
  3. SAINT JOHN^S WORT [Concomitant]
     Indication: MAJOR DEPRESSION
     Dosage: 600 MG, 1X/DAY
     Route: 065

REACTIONS (3)
  - Drug interaction [Recovered/Resolved]
  - Bipolar disorder [Recovered/Resolved]
  - Hallucination, visual [Recovered/Resolved]
